FAERS Safety Report 15788555 (Version 2)
Quarter: 2019Q1

REPORT INFORMATION
  Report Type: Report from Study
  Country: PK (occurrence: PK)
  Receive Date: 20190104
  Receipt Date: 20190130
  Transmission Date: 20190417
  Serious: Yes (Hospitalization)
  Sender: FDA-Public Use
  Company Number: PHHY2019PK000626

PATIENT
  Age: 70 Year
  Sex: Female

DRUGS (2)
  1. DIOVAN [Suspect]
     Active Substance: VALSARTAN
     Indication: HYPERTENSION
     Dosage: 1 DF, QD
     Route: 048
     Dates: start: 20160210
  2. DIOVAN [Suspect]
     Active Substance: VALSARTAN
     Dosage: 1 DF, BID
     Route: 065
     Dates: start: 20180101

REACTIONS (9)
  - Product prescribing error [Not Recovered/Not Resolved]
  - Inappropriate schedule of product administration [Not Recovered/Not Resolved]
  - Aphasia [Unknown]
  - Cerebrovascular accident [Recovered/Resolved]
  - Dysphagia [Unknown]
  - Gait disturbance [Unknown]
  - Fall [Unknown]
  - Motor dysfunction [Unknown]
  - Dizziness [Unknown]

NARRATIVE: CASE EVENT DATE: 20171101
